FAERS Safety Report 15434748 (Version 1)
Quarter: 2018Q3

REPORT INFORMATION
  Report Type: Spontaneous
  Country: US (occurrence: US)
  Receive Date: 20180921
  Receipt Date: 20180921
  Transmission Date: 20181010
  Serious: Yes (Hospitalization)
  Sender: FDA-Public Use
  Company Number: None

PATIENT
  Age: 68 Year
  Sex: Male

DRUGS (1)
  1. ZOLEDRONIC [Suspect]
     Active Substance: ZOLEDRONIC ACID
     Route: 042
     Dates: start: 20180711, end: 20180713

REACTIONS (2)
  - Hypotension [None]
  - Renal impairment [None]

NARRATIVE: CASE EVENT DATE: 20180713
